FAERS Safety Report 6210869-6 (Version None)
Quarter: 2009Q2

REPORT INFORMATION
  Report Type: 
  Country: None (occurrence: None)
  Receive Date: 20090601
  Receipt Date: 20090521
  Transmission Date: 20091009
  Serious: Yes (Other)
  Sender: FDA-Public Use
  Company Number: JP-PFIZER INC-2009218193

PATIENT

DRUGS (1)
  1. SALAZOPYRIN [Suspect]
     Route: 063

REACTIONS (2)
  - ANAEMIA HAEMOLYTIC AUTOIMMUNE [None]
  - DRUG EXPOSURE VIA BREAST MILK [None]
